FAERS Safety Report 7673387-4 (Version None)
Quarter: 2011Q3

REPORT INFORMATION
  Report Type: 
  Country: None (occurrence: None)
  Receive Date: 20110810
  Receipt Date: 20110801
  Transmission Date: 20111222
  Serious: Yes (Hospitalization, Other)
  Sender: FDA-Public Use
  Company Number: US-JNJFOC-20110102807

PATIENT
  Sex: Female
  Weight: 39 kg

DRUGS (6)
  1. INFLIXIMAB, RECOMBINANT [Suspect]
     Route: 042
     Dates: start: 20101008
  2. PREDNISONE [Concomitant]
  3. MERCAPTOPURINE [Concomitant]
  4. PREVACID [Concomitant]
  5. METRONIDAZOLE [Concomitant]
  6. INFLIXIMAB, RECOMBINANT [Suspect]
     Indication: CROHN'S DISEASE
     Route: 042
     Dates: start: 20100922

REACTIONS (1)
  - CROHN'S DISEASE [None]
